FAERS Safety Report 25989375 (Version 1)
Quarter: 2025Q4

REPORT INFORMATION
  Report Type: Spontaneous
  Country: EU (occurrence: EU)
  Receive Date: 20251103
  Receipt Date: 20251103
  Transmission Date: 20260119
  Serious: Yes (Death, Life-Threatening, Hospitalization)
  Sender: AMGEN
  Company Number: EU-AMGEN-POLSP2025214808

PATIENT
  Age: 29 Year
  Sex: Female

DRUGS (2)
  1. ECULIZUMAB [Suspect]
     Active Substance: ECULIZUMAB
     Indication: Atypical haemolytic uraemic syndrome
     Dosage: 900 MILLIGRAM, (SINGLE DOSE)
     Route: 065
  2. METHYLPREDNISOLONE [Concomitant]
     Active Substance: METHYLPREDNISOLONE
     Dosage: UNK, (HIGH DOSE)
     Route: 040

REACTIONS (6)
  - Death [Fatal]
  - Seizure [Unknown]
  - Respiratory failure [Unknown]
  - Hypertensive crisis [Unknown]
  - Subarachnoid haemorrhage [Unknown]
  - Aneurysm ruptured [Unknown]
